FAERS Safety Report 7090851-X (Version None)
Quarter: 2010Q4

REPORT INFORMATION
  Report Type: 
  Country: None (occurrence: None)
  Receive Date: 20101109
  Receipt Date: 20101018
  Transmission Date: 20110411
  Serious: No
  Sender: FDA-Public Use
  Company Number: US-BAYER-201026967NA

PATIENT
  Sex: Female

DRUGS (1)
  1. MIRENA [Suspect]
     Indication: CONTRACEPTION
     Dosage: FREQUENCY CONTINUOUS
     Route: 015
     Dates: start: 20050101

REACTIONS (10)
  - ABDOMINAL PAIN UPPER [None]
  - BACK PAIN [None]
  - DEVICE EXPULSION [None]
  - FATIGUE [None]
  - MENSTRUATION DELAYED [None]
  - NAUSEA [None]
  - PALPITATIONS [None]
  - POLLAKIURIA [None]
  - PREGNANCY [None]
  - SKIN DEPIGMENTATION [None]
